FAERS Safety Report 19028057 (Version 1)
Quarter: 2021Q1

REPORT INFORMATION
  Report Type: Spontaneous
  Country: FR (occurrence: FR)
  Receive Date: 20210319
  Receipt Date: 20210319
  Transmission Date: 20210420
  Serious: Yes (Other)
  Sender: FDA-Public Use
  Company Number: FR-AUROBINDO-AUR-APL-2021-011009

PATIENT
  Age: 49 Year
  Sex: Male
  Weight: 88 kg

DRUGS (11)
  1. ZOPHREN [Suspect]
     Active Substance: ONDANSETRON
     Indication: NAUSEA
     Dosage: VARIABLE
     Route: 065
     Dates: start: 20210128, end: 20210203
  2. FENTANYL. [Suspect]
     Active Substance: FENTANYL
     Indication: SEDATION
     Dosage: VARIABLE
     Route: 042
     Dates: start: 20210128, end: 20210201
  3. ACUPAN [Suspect]
     Active Substance: NEFOPAM HYDROCHLORIDE
     Indication: PAIN
     Dosage: VARIABLE
     Route: 065
     Dates: start: 20210127, end: 20210131
  4. PARACETAMOL [Suspect]
     Active Substance: ACETAMINOPHEN
     Indication: PAIN
     Dosage: VARIABLE
     Route: 065
     Dates: start: 20210127, end: 20210131
  5. PRIMPERAN [Suspect]
     Active Substance: METOCLOPRAMIDE HYDROCHLORIDE
     Indication: NAUSEA
     Dosage: VARIABLE
     Route: 065
     Dates: start: 20210129, end: 20210203
  6. LOVENOX [Concomitant]
     Active Substance: ENOXAPARIN SODIUM
     Indication: PRODUCT USED FOR UNKNOWN INDICATION
     Dosage: 1 DOSAGE FORM, ONCE A DAY
     Route: 058
     Dates: start: 20210128
  7. PROPOFOL. [Suspect]
     Active Substance: PROPOFOL
     Indication: SEDATION
     Dosage: VARIABLE
     Route: 042
     Dates: start: 20210129, end: 20210201
  8. CLINDAMYCIN. [Concomitant]
     Active Substance: CLINDAMYCIN
     Indication: ANTIBIOTIC THERAPY
     Dosage: 2.4 GRAM, ONCE A DAY (VARIABLE)
     Route: 042
     Dates: start: 20210128
  9. NORADRENALINE [Concomitant]
     Active Substance: NOREPINEPHRINE
     Indication: HYPOTENSION
     Dosage: VARIABLE
     Route: 042
     Dates: start: 20210128, end: 20210129
  10. AUGMENTIN [Concomitant]
     Active Substance: AMOXICILLIN\CLAVULANATE POTASSIUM
     Indication: ANTIBIOTIC THERAPY
     Dosage: 6 GRAM, ONCE A DAY
     Route: 042
     Dates: start: 20210128
  11. MORPHINE [Concomitant]
     Active Substance: MORPHINE
     Indication: PAIN
     Dosage: VARIABLE
     Route: 042
     Dates: start: 20210127, end: 20210128

REACTIONS (1)
  - Hepatocellular injury [Recovering/Resolving]

NARRATIVE: CASE EVENT DATE: 20210202
